FAERS Safety Report 7183328-4 (Version None)
Quarter: 2010Q4

REPORT INFORMATION
  Report Type: 
  Country: None (occurrence: None)
  Receive Date: 20101222
  Receipt Date: 20100305
  Transmission Date: 20110411
  Serious: No
  Sender: FDA-Public Use
  Company Number: A0848671A

PATIENT
  Age: 69 Year
  Sex: Male

DRUGS (9)
  1. TRIZIVIR [Suspect]
     Indication: HIV INFECTION
     Dosage: 1TAB TWICE PER DAY
     Route: 048
     Dates: start: 20070101
  2. GABAPENTIN [Concomitant]
  3. DILTIAZEM [Concomitant]
  4. TRIMETHOPRIM [Concomitant]
  5. RANITIDINE [Concomitant]
  6. LIPITOR [Concomitant]
  7. INDOMETHACIN [Concomitant]
  8. PREDNISONE [Concomitant]
  9. HYDROCHLOROTHIAZIDE [Concomitant]

REACTIONS (3)
  - DISCOMFORT [None]
  - FAT TISSUE INCREASED [None]
  - INSOMNIA [None]
